FAERS Safety Report 17330541 (Version 2)
Quarter: 2020Q1

REPORT INFORMATION
  Report Type: Spontaneous
  Country: US (occurrence: US)
  Receive Date: 20200127
  Receipt Date: 20200330
  Transmission Date: 20200409
  Serious: No
  Sender: FDA-Public Use
  Company Number: US-BAUSCH-BL-2020-001276

PATIENT
  Age: 58 Year
  Sex: Female
  Weight: 59.02 kg

DRUGS (2)
  1. LUMIFY [Suspect]
     Active Substance: BRIMONIDINE TARTRATE
     Dosage: ONE OR TWO DROPS IN EACH EYE, ONE TIME A DAY
     Route: 047
     Dates: start: 20200112, end: 20200113
  2. LUMIFY [Suspect]
     Active Substance: BRIMONIDINE TARTRATE
     Indication: OCULAR HYPERAEMIA
     Dosage: ABOUT ONE YEAR AGO, 3-4 TIMES PER WEEK, END DATE: ABOUT THREE MONTHS AGO
     Route: 047
     Dates: end: 2019

REACTIONS (6)
  - Lacrimation increased [Recovered/Resolved]
  - Eye swelling [Recovered/Resolved]
  - Ocular hyperaemia [Recovering/Resolving]
  - Inappropriate schedule of product administration [Unknown]
  - Fatigue [Recovered/Resolved]
  - Malaise [Recovered/Resolved]

NARRATIVE: CASE EVENT DATE: 20200113
